FAERS Safety Report 25208379 (Version 3)
Quarter: 2025Q4

REPORT INFORMATION
  Report Type: Spontaneous
  Country: EU (occurrence: EU)
  Receive Date: 20250417
  Receipt Date: 20251223
  Transmission Date: 20260118
  Serious: Yes (Death, Hospitalization, Other)
  Sender: CELLTRION
  Company Number: EU-ROCHE-2108505

PATIENT

DRUGS (10)
  1. RITUXIMAB [Suspect]
     Active Substance: RITUXIMAB
     Indication: Cryoglobulinaemia
     Dosage: 9000 MG, UNK, ROUTE: INFUSION; CUMULATIVE DOSAGE TO FIRST REACTION: 9000MG BEFORE THE ONSET OF LUNG
     Route: 042
  2. RITUXIMAB [Suspect]
     Active Substance: RITUXIMAB
     Indication: Hepatitis C
  3. MYCOPHENOLATE MOFETIL [Suspect]
     Active Substance: MYCOPHENOLATE MOFETIL
     Indication: Cryoglobulinaemia
     Dosage: UNK
     Route: 065
  4. MYCOPHENOLATE MOFETIL [Suspect]
     Active Substance: MYCOPHENOLATE MOFETIL
     Indication: Hepatitis C
  5. MYCOPHENOLATE MOFETIL [Suspect]
     Active Substance: MYCOPHENOLATE MOFETIL
     Indication: Cryoglobulinaemia
  6. TACROLIMUS [Suspect]
     Active Substance: TACROLIMUS
     Indication: Cryoglobulinaemia
     Dosage: UNK
     Route: 065
  7. TACROLIMUS [Suspect]
     Active Substance: TACROLIMUS
     Indication: Hepatitis C
     Dosage: UNK
     Route: 065
  8. TACROLIMUS [Suspect]
     Active Substance: TACROLIMUS
     Indication: Cryoglobulinaemia
  9. TACROLIMUS [Suspect]
     Active Substance: TACROLIMUS
     Indication: Cryoglobulinaemia
     Dosage: UNK
     Route: 065
  10. TACROLIMUS [Suspect]
     Active Substance: TACROLIMUS
     Indication: Hepatitis C

REACTIONS (11)
  - Cerebral haemorrhage [Fatal]
  - Systemic candida [Fatal]
  - Candida infection [Fatal]
  - Staphylococcal infection [Fatal]
  - Pneumonia bacterial [Fatal]
  - Klebsiella infection [Fatal]
  - Pseudomonas infection [Fatal]
  - Haematological infection [Fatal]
  - Pseudomonas infection [Unknown]
  - Off label use [Fatal]
  - Off label use [Recovered/Resolved]
